FAERS Safety Report 17141244 (Version 1)
Quarter: 2019Q4

REPORT INFORMATION
  Report Type: Report from Study
  Country: CN (occurrence: CN)
  Receive Date: 20191211
  Receipt Date: 20191211
  Transmission Date: 20200122
  Serious: Yes (Other)
  Sender: FDA-Public Use
  Company Number: CN-VIIV HEALTHCARE LIMITED-CN2019APC221022

PATIENT

DRUGS (3)
  1. LAMIVUDINE. [Concomitant]
     Active Substance: LAMIVUDINE
     Indication: PROPHYLAXIS
     Dosage: 0.3 G, QD
     Route: 048
     Dates: start: 20180803, end: 20180902
  2. TENOFOVIR [Concomitant]
     Active Substance: TENOFOVIR
     Indication: PROPHYLAXIS
     Dosage: 0.3 G, QD
     Route: 048
     Dates: start: 20180803, end: 20180902
  3. DOLUTEGRAVIR [Suspect]
     Active Substance: DOLUTEGRAVIR
     Indication: PROPHYLAXIS
     Dosage: 1 DF, QD
     Route: 048
     Dates: start: 20180803

REACTIONS (1)
  - HIV test positive [Not Recovered/Not Resolved]

NARRATIVE: CASE EVENT DATE: 20180904
